FAERS Safety Report 9179014 (Version 1)
Quarter: 2012Q4

REPORT INFORMATION
  Report Type: 
  Country: FR (occurrence: FR)
  Receive Date: 20121029
  Receipt Date: 20121029
  Transmission Date: 20130627
  Serious: Yes (Other)
  Sender: FDA-Public Use
  Company Number: FR-JNJFOC-20121013823

PATIENT
  Age: 4 Year
  Sex: Female

DRUGS (14)
  1. DOXORUBICIN [Suspect]
     Indication: BURKITT^S LYMPHOMA STAGE IV
     Dosage: COPADM regimen one cycle
     Route: 042
  2. CYCLOPHOSPHAMIDE [Suspect]
     Indication: BURKITT^S LYMPHOMA STAGE IV
     Dosage: second line chemotherapy
     Route: 065
  3. CYCLOPHOSPHAMIDE [Suspect]
     Indication: BURKITT^S LYMPHOMA STAGE IV
     Dosage: COPADM regimen one cycle
     Route: 065
  4. CYCLOPHOSPHAMIDE [Suspect]
     Indication: BURKITT^S LYMPHOMA STAGE IV
     Dosage: COP regimen
     Route: 065
  5. VINCRISTINE [Suspect]
     Indication: BURKITT^S LYMPHOMA STAGE IV
     Dosage: COPADM regimen one cycle
     Route: 065
  6. VINCRISTINE [Suspect]
     Indication: BURKITT^S LYMPHOMA STAGE IV
     Dosage: COP regimen
     Route: 065
  7. VINCRISTINE [Suspect]
     Indication: BURKITT^S LYMPHOMA STAGE IV
     Dosage: second line chemotherapy
     Route: 065
  8. PREDNISONE [Suspect]
     Indication: BURKITT^S LYMPHOMA STAGE IV
     Dosage: COP regimen
     Route: 065
  9. PREDNISONE [Suspect]
     Indication: BURKITT^S LYMPHOMA STAGE IV
     Dosage: COPADM regimen one cycle
     Route: 065
  10. METHOTREXATE [Suspect]
     Indication: BURKITT^S LYMPHOMA STAGE IV
     Dosage: COPADM regimen one cycle
     Route: 065
  11. RITUXIMAB [Suspect]
     Indication: BURKITT^S LYMPHOMA STAGE IV
     Dosage: second line chemotherapy
  12. CYTARABINE [Suspect]
     Indication: BURKITT^S LYMPHOMA STAGE IV
     Dosage: 2 CYVE courses
     Route: 065
  13. ETOPOSIDE [Suspect]
     Indication: BURKITT^S LYMPHOMA STAGE IV
     Dosage: 2 CYVE corses
     Route: 065
  14. METHOTREXATE [Suspect]
     Indication: BURKITT^S LYMPHOMA STAGE IV
     Dosage: High  dose, 3g/m2
     Route: 042

REACTIONS (5)
  - Adverse event [Unknown]
  - Neutropenia [Unknown]
  - Malnutrition [Unknown]
  - Acute respiratory distress syndrome [Unknown]
  - Mucosal inflammation [Unknown]
